FAERS Safety Report 20377924 (Version 3)
Quarter: 2022Q2

REPORT INFORMATION
  Report Type: Other
  Country: KR (occurrence: None)
  Receive Date: 20220126
  Receipt Date: 20220422
  Transmission Date: 20220720
  Serious: Yes (Other)
  Sender: FDA-Public Use
  Company Number: KR-ROCHE-3005582

PATIENT
  Age: 62 Year
  Sex: Male
  Weight: 69.3 kg

DRUGS (11)
  1. ATEZOLIZUMAB [Suspect]
     Active Substance: ATEZOLIZUMAB
     Indication: Hepatocellular carcinoma
     Dosage: ON 02/JUL/2021, 23/JUL/2021, 13/AUG/2021, 03/SEP/2021, 27/SEP/2021, 18/OCT/2021, 08/NOV/2021, 29/NOV
     Route: 041
     Dates: start: 20210611
  2. BEVACIZUMAB [Suspect]
     Active Substance: BEVACIZUMAB
     Indication: Hepatocellular carcinoma
     Dosage: ON 02/JUL/2021, 23/JUL/2021, 13/AUG/2021, 03/SEP/2021, 27/SEP/2021, 18/OCT/2021, 08/NOV/2021, 29/NOV
     Route: 042
     Dates: start: 20210611
  3. NORZYME [Concomitant]
     Indication: Dyspepsia
     Dates: start: 20210702
  4. URSODIOL [Concomitant]
     Active Substance: URSODIOL
     Dates: start: 20210702
  5. GODEX (SOUTH KOREA) [Concomitant]
     Dates: start: 20210610
  6. VIREAD [Concomitant]
     Active Substance: TENOFOVIR DISOPROXIL FUMARATE
     Indication: Hepatitis B
     Dates: start: 20210610
  7. MICATERE [Concomitant]
     Indication: Hypertension
     Dates: start: 2018
  8. TELMIONE [Concomitant]
     Indication: Hypertension
     Dates: start: 2018
  9. MOSAPRIDE CITRATE [Concomitant]
     Active Substance: MOSAPRIDE CITRATE
     Indication: Dyspepsia
     Dates: start: 20210813
  10. OXYCODONE HYDROCHLORIDE [Concomitant]
     Active Substance: OXYCODONE HYDROCHLORIDE
     Indication: Cancer pain
     Dosage: TAB 5MG
     Dates: start: 20220207
  11. LACTULOSE [Concomitant]
     Active Substance: LACTULOSE
     Dates: start: 20220207

REACTIONS (4)
  - Pruritus [Recovering/Resolving]
  - Thrombotic thrombocytopenic purpura [Recovered/Resolved]
  - Constipation [Recovering/Resolving]
  - Hypothyroidism [Recovering/Resolving]

NARRATIVE: CASE EVENT DATE: 20211220
